FAERS Safety Report 7625857-2 (Version None)
Quarter: 2011Q3

REPORT INFORMATION
  Report Type: 
  Country: None (occurrence: None)
  Receive Date: 20110721
  Receipt Date: 20110711
  Transmission Date: 20111222
  Serious: Yes (Other)
  Sender: FDA-Public Use
  Company Number: FR-JNJFOC-20110704002

PATIENT

DRUGS (2)
  1. ENOXAPARIN [Suspect]
     Indication: ILL-DEFINED DISORDER
  2. XARELTO [Suspect]
     Indication: ILL-DEFINED DISORDER
     Route: 048

REACTIONS (1)
  - VENOUS THROMBOSIS [None]
